FAERS Safety Report 6971734-X (Version None)
Quarter: 2010Q3

REPORT INFORMATION
  Report Type: 
  Country: None (occurrence: None)
  Receive Date: 20100908
  Receipt Date: 20100827
  Transmission Date: 20110219
  Serious: Yes (Hospitalization)
  Sender: FDA-Public Use
  Company Number: GB-WATSON-2010-11556

PATIENT
  Sex: Male

DRUGS (6)
  1. TRELSTAR (WATSON LABORATORIES) [Suspect]
     Indication: PROSTATE CANCER
     Dosage: 22.5 MG, SINGLE CYCLE
     Route: 030
  2. ZOPICLONE [Suspect]
     Indication: INSOMNIA
     Dosage: 7.5 MG, AT NIGHT
     Route: 048
     Dates: start: 20100614
  3. CITALOPRAM HYDROBROMIDE [Suspect]
     Indication: DEPRESSION
     Dosage: 40 MG, 1 IN 1 D
     Route: 048
     Dates: start: 20100628
  4. INDAPAMIDE [Concomitant]
     Indication: HYPERTENSION
     Dosage: 1.5 MG, DAILY (PRE-TRIAL - ONGOING)
     Route: 048
  5. DOMPERIDONE [Concomitant]
     Indication: NAUSEA
     Dosage: 10 MG, TID (10 MG, 3 IN 1 D)
     Route: 065
  6. SIMVASTATIN [Concomitant]
     Indication: PRODUCT USED FOR UNKNOWN INDICATION
     Dosage: UNK
     Route: 048

REACTIONS (3)
  - DEPRESSION [None]
  - INTENTIONAL OVERDOSE [None]
  - SUICIDE ATTEMPT [None]
